FAERS Safety Report 13757427 (Version 1)
Quarter: 2017Q3

REPORT INFORMATION
  Report Type: Report from Study
  Country: None (occurrence: US)
  Receive Date: 20170716
  Receipt Date: 20170716
  Transmission Date: 20171127
  Serious: Yes (Other)
  Sender: FDA-Public Use
  Company Number: US-ABBVIE-17P-163-1844011-00

PATIENT
  Sex: Male

DRUGS (1)
  1. HUMIRA [Suspect]
     Active Substance: ADALIMUMAB
     Indication: PSORIASIS
     Route: 058
     Dates: start: 20060401

REACTIONS (12)
  - Pain in extremity [Unknown]
  - Diabetes mellitus [Not Recovered/Not Resolved]
  - Nerve compression [Unknown]
  - Arthritis [Unknown]
  - Neck pain [Unknown]
  - Intervertebral disc protrusion [Not Recovered/Not Resolved]
  - Psoriasis [Recovered/Resolved]
  - Limb operation [Unknown]
  - Sinus operation [Unknown]
  - Skin mass [Unknown]
  - Gastric disorder [Not Recovered/Not Resolved]
  - Hypersensitivity [Unknown]

NARRATIVE: CASE EVENT DATE: 2007
